FAERS Safety Report 4787220-1 (Version None)
Quarter: 2005Q3

REPORT INFORMATION
  Report Type: 
  Country: None (occurrence: None)
  Receive Date: 20050930
  Receipt Date: 20050920
  Transmission Date: 20060218
  Serious: Yes (Death)
  Sender: FDA-Public Use
  Company Number: HQWYE577627JUL05

PATIENT
  Sex: Male
  Weight: 136.2 kg

DRUGS (5)
  1. EFFEXOR XR [Suspect]
     Indication: MAJOR DEPRESSION
     Dosage: SEE IMAGE
     Dates: start: 20020101, end: 20050101
  2. EFFEXOR XR [Suspect]
     Indication: MAJOR DEPRESSION
     Dosage: SEE IMAGE
     Dates: start: 20050101, end: 20050101
  3. ACIPHEX [Concomitant]
  4. CELEBREX [Concomitant]
  5. ALEVE [Concomitant]

REACTIONS (8)
  - ANGER [None]
  - COMPLETED SUICIDE [None]
  - DRUG DOSE OMISSION [None]
  - DRUG WITHDRAWAL SYNDROME [None]
  - EXCITABILITY [None]
  - FEELING HOT [None]
  - INTENTIONAL MISUSE [None]
  - MIOSIS [None]
